FAERS Safety Report 13564186 (Version 1)
Quarter: 2017Q2

REPORT INFORMATION
  Report Type: Spontaneous
  Country: US (occurrence: US)
  Receive Date: 20170519
  Receipt Date: 20170519
  Transmission Date: 20170830
  Serious: Yes (Other)
  Sender: FDA-Public Use
  Company Number: US-PFIZER INC-2017211926

PATIENT
  Sex: Female

DRUGS (2)
  1. IBRANCE [Suspect]
     Active Substance: PALBOCICLIB
     Indication: BREAST CANCER METASTATIC
     Dosage: UNK
  2. LETROZOLE. [Concomitant]
     Active Substance: LETROZOLE
     Dosage: UNK

REACTIONS (9)
  - Fatigue [Unknown]
  - Erythema [Unknown]
  - Weight increased [Unknown]
  - Lacrimation increased [Unknown]
  - Migraine [Unknown]
  - Skin exfoliation [Unknown]
  - Pulmonary embolism [Unknown]
  - Diarrhoea [Unknown]
  - Constipation [Unknown]
